FAERS Safety Report 8624439-3 (Version None)
Quarter: 2012Q3

REPORT INFORMATION
  Report Type: 
  Country: None (occurrence: None)
  Receive Date: 20120827
  Receipt Date: 20120821
  Transmission Date: 20120928
  Serious: Yes (Hospitalization)
  Sender: FDA-Public Use
  Company Number: CO-PFIZER INC-2012155909

PATIENT
  Age: 57 Year
  Sex: Female

DRUGS (5)
  1. HEIPRAM [Concomitant]
     Indication: DEPRESSION
     Dosage: UNK
     Dates: start: 20120401
  2. BETALOC ZOK ^ASTRA^ [Concomitant]
     Indication: HYPERTENSION
     Dosage: 100 MG, 2X/DAY
     Route: 048
     Dates: start: 19720101
  3. EFFEXOR [Suspect]
     Indication: DEPRESSION
     Dosage: 75 MG, 1X/DAY
     Route: 048
     Dates: start: 20120502, end: 20120509
  4. DIOVAN [Concomitant]
     Indication: HYPERTENSION
     Dosage: 80 MG, 1X/DAY
     Route: 048
     Dates: start: 19720101
  5. CATAPRES [Concomitant]
     Indication: HYPERTENSION
     Dosage: 150 MG, 1X/DAY
     Route: 048
     Dates: start: 19720101

REACTIONS (5)
  - MALAISE [None]
  - FEAR [None]
  - POISONING [None]
  - CHILLS [None]
  - DEPRESSION [None]
